FAERS Safety Report 6960471-3 (Version None)
Quarter: 2010Q3

REPORT INFORMATION
  Report Type: 
  Country: None (occurrence: None)
  Receive Date: 20100823
  Receipt Date: 20100701
  Transmission Date: 20110219
  Serious: No
  Sender: FDA-Public Use
  Company Number: 014982

PATIENT
  Sex: Female
  Weight: 65 kg

DRUGS (13)
  1. CIMZIA [Suspect]
     Indication: CROHN'S DISEASE
     Dosage: (400 MG 1X/MONTH SUBCUTANEOUS)
     Route: 058
     Dates: start: 20100101
  2. FOLIC ACID [Concomitant]
  3. HYDROCHLOROTHIAZIDE [Concomitant]
  4. LISINOPRIL [Concomitant]
  5. NEXIUM /01479301/ [Concomitant]
  6. VITAMIN D [Concomitant]
  7. DULCOLAX /00061602/ [Concomitant]
  8. ALEVE [Concomitant]
  9. POTASSIUM CITRATE [Concomitant]
  10. RESTASIS [Concomitant]
  11. TRICOR [Concomitant]
  12. MAGNESIUM [Concomitant]
  13. VITAMIN B 12 LICHTENSTEIN [Concomitant]

REACTIONS (4)
  - ABDOMINAL PAIN [None]
  - DIARRHOEA [None]
  - NAUSEA [None]
  - VOMITING [None]
